FAERS Safety Report 6786934-1 (Version None)
Quarter: 2010Q2

REPORT INFORMATION
  Report Type: 
  Country: None (occurrence: None)
  Receive Date: 20100621
  Receipt Date: 20100610
  Transmission Date: 20101027
  Serious: Yes (Death)
  Sender: FDA-Public Use
  Company Number: 410053

PATIENT
  Age: 52 Year
  Sex: Female

DRUGS (12)
  1. EPIRUBICIN [Suspect]
     Indication: BREAST CANCER
     Dosage: 4 CYCLES,
  2. CYCLOPHOSPHAMIDE [Suspect]
     Indication: BREAST CANCER
     Dosage: 4 CYCLES,
  3. (CHEMOTHERAPEUTICS NOS) [Suspect]
     Indication: BREAST CANCER
     Dates: start: 20080522
  4. DOCETAXEL [Suspect]
     Indication: BREAST CANCER
     Dosage: 4 CYCLES,
  5. CLOZARIL [Suspect]
     Indication: SCHIZOPHRENIA
     Dosage: ORAL, 400 MG ORAL
     Route: 048
     Dates: start: 20030909, end: 20060828
  6. CLOZARIL [Suspect]
     Indication: SCHIZOPHRENIA
     Dosage: ORAL, 400 MG ORAL
     Route: 048
     Dates: start: 20061009
  7. (AMITRIPTYLINE) [Concomitant]
  8. ASACOL [Concomitant]
  9. CLONAZEPAM [Concomitant]
  10. ESCITALOPRAM [Concomitant]
  11. EZETIMIBE [Concomitant]
  12. (MESALAZINE) [Concomitant]

REACTIONS (9)
  - BREAST CANCER FEMALE [None]
  - CIRCULATORY COLLAPSE [None]
  - DIABETES MELLITUS [None]
  - HYPOGLYCAEMIA [None]
  - LYMPHADENOPATHY [None]
  - LYMPHOCYTE COUNT DECREASED [None]
  - PNEUMONIA [None]
  - TREATMENT NONCOMPLIANCE [None]
  - WHITE BLOOD CELL COUNT DECREASED [None]
